FAERS Safety Report 5777695-3 (Version None)
Quarter: 2008Q2

REPORT INFORMATION
  Report Type: 
  Country: None (occurrence: None)
  Receive Date: 20080618
  Receipt Date: 20080611
  Transmission Date: 20081010
  Serious: Yes (Life-Threatening)
  Sender: FDA-Public Use
  Company Number: FR-BOEHRINGER INGELHEIM GMBH, GERMANY-2008-BP-09057RO

PATIENT
  Age: 13 Year
  Sex: Female
  Weight: 55 kg

DRUGS (12)
  1. LIDOCAINE [Suspect]
     Indication: LOCAL ANAESTHESIA
  2. LIDOCAINE [Suspect]
  3. EPINEPHRINE [Suspect]
     Indication: LOCAL ANAESTHESIA
  4. EPINEPHRINE [Suspect]
  5. ROPIVACAINE [Suspect]
     Indication: LOCAL ANAESTHESIA
  6. ROPIVACAINE [Suspect]
  7. HYDROXYSINE [Suspect]
     Indication: ANAESTHETIC PREMEDICATION
     Route: 048
  8. SEVOFLURANE [Suspect]
     Indication: GENERAL ANAESTHESIA
  9. OXYGEN [Suspect]
     Indication: GENERAL ANAESTHESIA
  10. NITROUS OXIDE [Suspect]
     Indication: GENERAL ANAESTHESIA
  11. SODIUM CHLORIDE [Suspect]
     Route: 042
  12. MEDIALIPID [Concomitant]
     Indication: DRUG TOXICITY

REACTIONS (2)
  - DRUG TOXICITY [None]
  - VENTRICULAR ARRHYTHMIA [None]
